FAERS Safety Report 6627944-4 (Version None)
Quarter: 2010Q1

REPORT INFORMATION
  Report Type: 
  Country: None (occurrence: None)
  Receive Date: 20100311
  Receipt Date: 20090409
  Transmission Date: 20100710
  Serious: No
  Sender: FDA-Public Use
  Company Number: A0777944A

PATIENT
  Age: 33 Year
  Sex: Male

DRUGS (1)
  1. NICORETTE [Suspect]
     Dates: start: 20090330, end: 20090407

REACTIONS (2)
  - GINGIVAL PAIN [None]
  - SENSITIVITY OF TEETH [None]
